FAERS Safety Report 7217862-5 (Version None)
Quarter: 2011Q1

REPORT INFORMATION
  Report Type: 
  Country: None (occurrence: None)
  Receive Date: 20110110
  Receipt Date: 20101229
  Transmission Date: 20110831
  Serious: Yes (Other)
  Sender: FDA-Public Use
  Company Number: NL-GENZYME-CLOF-1001365

PATIENT
  Sex: Male
  Weight: 90 kg

DRUGS (1)
  1. EVOLTRA [Suspect]
     Indication: ACUTE LEUKAEMIA
     Dosage: 15 MG, UNK
     Route: 042
     Dates: start: 20101029, end: 20101103

REACTIONS (1)
  - BONE MARROW FAILURE [None]
